FAERS Safety Report 13619718 (Version 1)
Quarter: 2017Q2

REPORT INFORMATION
  Report Type: Report from Study
  Country: US (occurrence: US)
  Receive Date: 20170606
  Receipt Date: 20170606
  Transmission Date: 20170830
  Serious: Yes (Other)
  Sender: FDA-Public Use
  Company Number: US-JAZZ-2017-US-007119

PATIENT
  Sex: Female

DRUGS (4)
  1. XYREM [Suspect]
     Active Substance: SODIUM OXYBATE
     Dosage: 4.5 G, BID
     Route: 048
     Dates: start: 201102
  2. CORTISOL [Suspect]
     Active Substance: HYDROCORTISONE
     Indication: CARPAL TUNNEL SYNDROME
  3. XYREM [Suspect]
     Active Substance: SODIUM OXYBATE
     Indication: NARCOLEPSY
     Dosage: DOSE ADJUSTMENT
     Route: 048
     Dates: start: 201101, end: 201102
  4. XYREM [Suspect]
     Active Substance: SODIUM OXYBATE
     Indication: CATAPLEXY
     Dosage: 2.25 G, BID
     Route: 048
     Dates: start: 201101, end: 201101

REACTIONS (18)
  - Insomnia [Unknown]
  - Vitamin D abnormal [Unknown]
  - Headache [Unknown]
  - Sleep apnoea syndrome [Unknown]
  - Blood cholesterol increased [Unknown]
  - Hypertension [Unknown]
  - Necrobiosis lipoidica diabeticorum [Unknown]
  - Tarsal tunnel syndrome [Unknown]
  - Restless legs syndrome [Unknown]
  - Back disorder [Unknown]
  - Viral upper respiratory tract infection [Unknown]
  - Somnolence [Unknown]
  - Nausea [Unknown]
  - Diabetes mellitus [Unknown]
  - Carpal tunnel syndrome [Unknown]
  - Weight increased [Unknown]
  - Heart rate increased [Unknown]
  - Hepatic cirrhosis [Unknown]
